FAERS Safety Report 6159476-4 (Version None)
Quarter: 2009Q2

REPORT INFORMATION
  Report Type: 
  Country: None (occurrence: None)
  Receive Date: 20090418
  Receipt Date: 20090403
  Transmission Date: 20091009
  Serious: Yes (Other)
  Sender: FDA-Public Use
  Company Number: US-ROCHE-621474

PATIENT
  Sex: Female
  Weight: 59 kg

DRUGS (6)
  1. ISOTRETINOIN [Suspect]
     Dosage: PATIENT DISPENSED ACCUTANE 40MG CAPSULES ON 26 APRIL 2008 AND 23 OCTOBER 2008., MISSED DOSES
     Route: 048
  2. ISOTRETINOIN [Suspect]
     Dosage: PATIENT WAS DISPENSED 40 MG CAP ON 25 NOV 08, 20 MG BID ON 09 FEB 09. MISSED DOSES
     Route: 048
  3. ISOTRETINOIN [Suspect]
     Dosage: DOSE REDUCED
     Route: 048
  4. CLARAVIS [Suspect]
     Indication: DRUG USE FOR UNKNOWN INDICATION
     Dosage: DISPENSED CLARAVIS 20MG CAP ON 22JUNE08; 40MG CAP ON 04DEC08.
     Route: 065
  5. AMNESTEEM [Suspect]
     Indication: DRUG USE FOR UNKNOWN INDICATION
     Dosage: PATIENT DISPENSED AMNESTEEM 20 MG CAPSULES ON 22 MARCH 2008.
     Route: 065
  6. VITAMIN E [Concomitant]
     Indication: VITAMIN SUPPLEMENTATION
     Route: 048

REACTIONS (3)
  - PAIN [None]
  - TONSILLECTOMY [None]
  - TREATMENT NONCOMPLIANCE [None]
